FAERS Safety Report 18564855 (Version 1)
Quarter: 2020Q4

REPORT INFORMATION
  Report Type: Spontaneous
  Country: US (occurrence: US)
  Receive Date: 20201201
  Receipt Date: 20201201
  Transmission Date: 20210114
  Serious: Yes (Other)
  Sender: FDA-Public Use
  Company Number: US-PFIZER INC-2020467903

PATIENT
  Age: 52 Year
  Sex: Female
  Weight: 58.96 kg

DRUGS (2)
  1. GABAPENTIN. [Suspect]
     Active Substance: GABAPENTIN
     Indication: HOT FLUSH
     Dosage: UNK
  2. TURMERIC [CURCUMA LONGA RHIZOME] [Suspect]
     Active Substance: HERBALS\TURMERIC
     Indication: HOT FLUSH
     Dosage: UNK

REACTIONS (5)
  - Off label use [Unknown]
  - Night sweats [Unknown]
  - Neutrophil count decreased [Unknown]
  - Oral pain [Recovered/Resolved]
  - Pain in extremity [Unknown]
